FAERS Safety Report 21824361 (Version 1)
Quarter: 2023Q1

REPORT INFORMATION
  Report Type: Spontaneous
  Country: FI (occurrence: FI)
  Receive Date: 20230105
  Receipt Date: 20230105
  Transmission Date: 20230418
  Serious: Yes (Hospitalization, Other)
  Sender: FDA-Public Use
  Company Number: FI-AMGEN-FINSP2022226556

PATIENT
  Age: 72 Year
  Sex: Female

DRUGS (1)
  1. PROLIA [Suspect]
     Active Substance: DENOSUMAB
     Indication: Pathological fracture prophylaxis
     Dosage: UNK
     Route: 065

REACTIONS (23)
  - Acute phase reaction [Recovering/Resolving]
  - Deep vein thrombosis [Unknown]
  - Fatigue [Recovered/Resolved]
  - Oropharyngeal pain [Unknown]
  - Synovitis [Unknown]
  - Dyspnoea exertional [Unknown]
  - Trismus [Unknown]
  - Muscle twitching [Unknown]
  - Blood 1,25-dihydroxycholecalciferol increased [Unknown]
  - Neutrophil/lymphocyte ratio decreased [Unknown]
  - Blood alkaline phosphatase increased [Recovered/Resolved]
  - Blood thyroid stimulating hormone increased [Recovered/Resolved]
  - C-reactive protein increased [Recovered/Resolved]
  - Off label use [Unknown]
  - Hypoaesthesia [Unknown]
  - Neck pain [Unknown]
  - Abdominal pain [Unknown]
  - Pyrexia [Recovered/Resolved]
  - Headache [Recovered/Resolved]
  - Arthralgia [Recovered/Resolved]
  - Muscle spasms [Unknown]
  - Paraesthesia [Unknown]
  - Musculoskeletal pain [Unknown]
